FAERS Safety Report 24351511 (Version 1)
Quarter: 2024Q3

REPORT INFORMATION
  Report Type: Report from Study
  Country: PT (occurrence: PT)
  Receive Date: 20240923
  Receipt Date: 20240923
  Transmission Date: 20241016
  Serious: No
  Sender: ROCHE
  Company Number: PT-ROCHE-2714936

PATIENT
  Age: 37 Year
  Sex: Female
  Weight: 52.3 kg

DRUGS (35)
  1. HERCEPTIN [Suspect]
     Active Substance: TRASTUZUMAB
     Indication: HER2 positive breast cancer
     Dosage: MOST RECENT DOSE 29/AUG/2019
     Route: 042
     Dates: start: 20160801
  2. TAXOTERE [Suspect]
     Active Substance: DOCETAXEL
     Indication: HER2 positive breast cancer
     Route: 042
     Dates: start: 20160802, end: 20161004
  3. TAXOTERE [Suspect]
     Active Substance: DOCETAXEL
     Dosage: MOST RECENT DOSE 25/OCT/2016
     Route: 042
     Dates: start: 20161004
  4. PERJETA [Suspect]
     Active Substance: PERTUZUMAB
     Indication: HER2 positive breast cancer
     Dosage: MOST RECENT DOSE 20/NOV/2018
     Route: 042
     Dates: start: 20160913
  5. KADCYLA [Suspect]
     Active Substance: ADO-TRASTUZUMAB EMTANSINE
     Indication: HER2 positive breast cancer
     Route: 042
     Dates: start: 20191002, end: 20200430
  6. KADCYLA [Suspect]
     Active Substance: ADO-TRASTUZUMAB EMTANSINE
     Dosage: MOST RECENT DOSE 23/JUN/2020
     Route: 042
     Dates: start: 20200623
  7. ARCOXIA [Concomitant]
     Active Substance: ETORICOXIB
     Indication: Pain
  8. DOXYCYCLINE [Concomitant]
     Active Substance: DOXYCYCLINE\DOXYCYCLINE HYCLATE
     Indication: Rash
     Dates: start: 20170503
  9. IBUPROFEN [Concomitant]
     Active Substance: IBUPROFEN
     Indication: Headache
     Dates: start: 20190213
  10. CICLOPIROX [Concomitant]
     Active Substance: CICLOPIROX
     Indication: Onychomycosis
     Dosage: ONGOING = CHECKED
     Dates: start: 20170503
  11. CLEMASTINE [Concomitant]
     Active Substance: CLEMASTINE
     Indication: Rash pustular
     Dates: start: 20181031
  12. CLOTRIMAZOLE [Concomitant]
     Active Substance: CLOTRIMAZOLE
     Indication: Erythema
     Dosage: ONGOING = CHECKED
     Dates: start: 20170816
  13. FLUCLOXACILLIN [Concomitant]
     Active Substance: FLUCLOXACILLIN
     Indication: Paronychia
     Dates: start: 20180612
  14. FOLIC ACID [Concomitant]
     Active Substance: FOLIC ACID
     Indication: Anaemia
     Dates: start: 20180905
  15. BETAMETHASONE VALERATE\FUSIDIC ACID [Concomitant]
     Active Substance: BETAMETHASONE VALERATE\FUSIDIC ACID
     Indication: Rash
     Dates: start: 20170503
  16. FUSIDATE SODIUM [Concomitant]
     Active Substance: FUSIDATE SODIUM
  17. HYDROCORTISONE [Concomitant]
     Active Substance: HYDROCORTISONE\HYDROCORTISONE ACETATE
     Indication: Rash pustular
     Dates: start: 20181031
  18. HYDROXYZINE [Concomitant]
     Active Substance: HYDROXYZINE HYDROCHLORIDE
     Indication: Rash pustular
     Dosage: ONGOING = CHECKED
     Dates: start: 20181120
  19. METAMIZOLE [Concomitant]
     Active Substance: METAMIZOLE
     Indication: Rash pustular
     Dates: start: 20181206
  20. METAMIZOLE [Concomitant]
     Active Substance: METAMIZOLE
     Indication: Pain
  21. BENZOYL PEROXIDE [Concomitant]
     Active Substance: BENZOYL PEROXIDE
     Indication: Rash
     Dosage: ONGOING = CHECKED
     Dates: start: 20170503
  22. PREDNISOLONE [Concomitant]
     Active Substance: PREDNISOLONE
     Indication: Rash pustular
     Dosage: ONGOING = CHECKED
     Dates: start: 20180403
  23. PREDNISOLONE [Concomitant]
     Active Substance: PREDNISOLONE
     Dosage: ONGOING = CHECKED
  24. TANTUM [Concomitant]
     Active Substance: BENZYDAMINE HYDROCHLORIDE
     Indication: Mucosal inflammation
     Dates: start: 20170816
  25. TRAMADOL [Concomitant]
     Active Substance: TRAMADOL\TRAMADOL HYDROCHLORIDE
     Indication: Pain
     Dates: start: 20160831
  26. ZYRTEC (PORTUGAL) [Concomitant]
     Dates: start: 20170301
  27. ZYRTEC (PORTUGAL) [Concomitant]
     Dates: start: 20161115
  28. DIAZEPAM [Concomitant]
     Active Substance: DIAZEPAM
     Indication: Headache
     Dosage: ONGOING = CHECKED
     Dates: start: 20180403
  29. MIRTAZAPINE [Concomitant]
     Active Substance: MIRTAZAPINE
     Indication: Insomnia
     Dates: start: 20180403
  30. IRON [Concomitant]
     Active Substance: IRON
     Indication: Anaemia
  31. DOXYCYCLINE [Concomitant]
     Active Substance: DOXYCYCLINE\DOXYCYCLINE HYCLATE
     Indication: Rash pustular
  32. MINOCYCLINE [Concomitant]
     Active Substance: MINOCYCLINE HYDROCHLORIDE
     Indication: Rash pustular
  33. CETIRIZINE [Concomitant]
     Active Substance: CETIRIZINE HYDROCHLORIDE
     Indication: Rash pustular
  34. ISOTRETINOIN [Concomitant]
     Active Substance: ISOTRETINOIN
  35. ONDANSETRON [Concomitant]
     Active Substance: ONDANSETRON
     Indication: Pain

REACTIONS (2)
  - Papulopustular rosacea [Recovering/Resolving]
  - Dermatitis acneiform [Recovering/Resolving]

NARRATIVE: CASE EVENT DATE: 20200406
